FAERS Safety Report 12387669 (Version 2)
Quarter: 2016Q3

REPORT INFORMATION
  Report Type: Spontaneous
  Country: IT (occurrence: IT)
  Receive Date: 20160520
  Receipt Date: 20160705
  Transmission Date: 20161109
  Serious: Yes (Other)
  Sender: FDA-Public Use
  Company Number: IT-ROCHE-1761059

PATIENT
  Age: 63 Year
  Sex: Female
  Weight: 56 kg

DRUGS (4)
  1. SELES BETA [Concomitant]
     Active Substance: ATENOLOL
     Dosage: 100 MG TABLETS^ 50 TABLETS
     Route: 065
  2. HERCEPTIN [Suspect]
     Active Substance: TRASTUZUMAB
     Indication: HER-2 POSITIVE BREAST CANCER
     Route: 042
     Dates: end: 2013
  3. HERCEPTIN [Suspect]
     Active Substance: TRASTUZUMAB
     Route: 042
     Dates: start: 2014
  4. HERCEPTIN [Suspect]
     Active Substance: TRASTUZUMAB
     Indication: HER-2 POSITIVE BREAST CANCER
     Dosage: 600MG/5 ML SOLUTION
     Route: 058

REACTIONS (5)
  - Ejection fraction decreased [Unknown]
  - Dysphonia [Unknown]
  - Dysphagia [Unknown]
  - Vocal cord paralysis [Unknown]
  - Cough [Unknown]

NARRATIVE: CASE EVENT DATE: 20150825
